FAERS Safety Report 10483431 (Version 1)
Quarter: 2014Q3

REPORT INFORMATION
  Report Type: Spontaneous
  Country: ZA (occurrence: None)
  Receive Date: 20140926
  Receipt Date: 20140926
  Transmission Date: 20150326
  Serious: Yes (Death, Hospitalization)
  Sender: FDA-Public Use
  Company Number: 2546740

PATIENT
  Age: 65 Year
  Sex: Female

DRUGS (2)
  1. DEXMEDETOMIDINE HYDROCHLORIDE [Suspect]
     Active Substance: DEXMEDETOMIDINE HYDROCHLORIDE
     Indication: SEDATION
     Dates: start: 201403, end: 201403
  2. MORPHINE [Concomitant]
     Active Substance: MORPHINE

REACTIONS (4)
  - Pneumonia [None]
  - Anxiety [None]
  - Respiratory failure [None]
  - Hyperventilation [None]

NARRATIVE: CASE EVENT DATE: 2014
